FAERS Safety Report 7689233-9 (Version None)
Quarter: 2011Q3

REPORT INFORMATION
  Report Type: 
  Country: None (occurrence: None)
  Receive Date: 20110817
  Receipt Date: 20110813
  Transmission Date: 20111222
  Serious: Yes (Other)
  Sender: FDA-Public Use
  Company Number: US-AMGEN-USASP2011037762

PATIENT
  Age: 73 Year
  Sex: Male
  Weight: 90 kg

DRUGS (8)
  1. LISINOPRIL [Concomitant]
     Dosage: 20 MG, QD
  2. TRAMADOL HCL [Concomitant]
  3. NPLATE [Suspect]
     Indication: IDIOPATHIC THROMBOCYTOPENIC PURPURA
     Dosage: 0.25 A?G/KG, QWK
     Route: 058
     Dates: start: 20081217
  4. PREDNISONE [Concomitant]
     Dosage: 20 MG, TID
  5. HYDROXYZINE [Concomitant]
     Dosage: 25 MG, UNK
  6. PERCOCET [Concomitant]
  7. SIMAVASTATIN [Concomitant]
     Dosage: 40 MG, UNK
  8. IMMUNOGLOBULINS [Concomitant]

REACTIONS (1)
  - PLATELET COUNT DECREASED [None]
